FAERS Safety Report 17841851 (Version 1)
Quarter: 2020Q2

REPORT INFORMATION
  Report Type: Spontaneous
  Country: US (occurrence: US)
  Receive Date: 20200529
  Receipt Date: 20200529
  Transmission Date: 20200714
  Serious: Yes (Other)
  Sender: FDA-Public Use
  Company Number: US-P+L DEVELOPMENT, LLC-2084330

PATIENT
  Sex: Male

DRUGS (1)
  1. 91 PERCENT ISOPROPYL ALCOHOL [Suspect]
     Active Substance: ISOPROPYL ALCOHOL
     Indication: OTITIS EXTERNA
     Dates: start: 20200508

REACTIONS (2)
  - Thermal burn [Recovering/Resolving]
  - Burning sensation [Recovering/Resolving]
